FAERS Safety Report 14943016 (Version 6)
Quarter: 2018Q2

REPORT INFORMATION
  Report Type: Report from Study
  Country: None (occurrence: BE)
  Receive Date: 20180528
  Receipt Date: 20180629
  Transmission Date: 20180711
  Serious: Yes (Hospitalization)
  Sender: FDA-Public Use
  Company Number: BE-ABBVIE-18K-013-2368522-00

PATIENT
  Sex: Male

DRUGS (11)
  1. DUODOPA [Suspect]
     Active Substance: CARBIDOPA\LEVODOPA
     Indication: PARKINSON^S DISEASE
     Dosage: MD=9ML?CD=5ML/HR DURING 16HRS ?ED=3ML
     Route: 050
     Dates: start: 20120924, end: 20130731
  2. DUODOPA [Suspect]
     Active Substance: CARBIDOPA\LEVODOPA
     Dosage: DOSES CONTINOUSLY MONITORED AND ADAPTED.
     Route: 050
     Dates: start: 20130731, end: 20180223
  3. DUODOPA [Suspect]
     Active Substance: CARBIDOPA\LEVODOPA
     Route: 050
  4. DUODOPA [Suspect]
     Active Substance: CARBIDOPA\LEVODOPA
     Dosage: MD=3ML?CD=3.1ML/HR DURING 16HRS?ED=2ML
     Route: 050
     Dates: end: 20180626
  5. STALEVO 150 [Concomitant]
     Dosage: FORM STRENGTH: 150MG/37.5MG/200MG, 5 TIME/DAY AS RESCUE MEDICATION
  6. DUODOPA [Suspect]
     Active Substance: CARBIDOPA\LEVODOPA
     Dosage: MD=5ML?CD=3.3ML/HR DURING 16HRS ?ED=2ML
     Route: 050
     Dates: start: 20180223, end: 20180531
  7. DUODOPA [Suspect]
     Active Substance: CARBIDOPA\LEVODOPA
     Dosage: MD=3ML?CD=3.3ML/HR DURING 16HRS?ED=2ML
     Route: 050
     Dates: start: 20180531
  8. DUODOPA [Suspect]
     Active Substance: CARBIDOPA\LEVODOPA
     Dosage: MD=3ML?CD=2.8ML/HR DURING 16HRS?ED=2ML
     Route: 050
     Dates: start: 20180626
  9. PROLOPA 125 HBS [Concomitant]
     Indication: PRODUCT USED FOR UNKNOWN INDICATION
     Dosage: FORM STRENGTH: 100MG/25MG??UNIT DOSE : 2 CAPSULES
  10. STALEVO 150 [Concomitant]
     Indication: PARKINSON^S DISEASE
     Dosage: FORM STRENGTH: 150MG/37.5MG/200MG??UNIT DOSE : 1 TABLET
     Route: 048
  11. MIRAPEXIN [Concomitant]
     Active Substance: PRAMIPEXOLE
     Indication: PRODUCT USED FOR UNKNOWN INDICATION

REACTIONS (8)
  - Gait disturbance [Unknown]
  - Freezing phenomenon [Unknown]
  - Urinary tract infection [Unknown]
  - Drug ineffective [Unknown]
  - Dyskinesia [Recovering/Resolving]
  - Extra dose administered [Not Recovered/Not Resolved]
  - Stress [Unknown]
  - General physical health deterioration [Unknown]
